FAERS Safety Report 8318240-8 (Version None)
Quarter: 2012Q2

REPORT INFORMATION
  Report Type: 
  Country: None (occurrence: None)
  Receive Date: 20120427
  Receipt Date: 20120426
  Transmission Date: 20120825
  Serious: Yes (Death)
  Sender: FDA-Public Use
  Company Number: GB-JNJFOC-20111102585

PATIENT

DRUGS (9)
  1. DOXORUBICIN HYDROCHLORIDE [Suspect]
     Indication: HODGKIN'S DISEASE
     Dosage: CYCLE 1
     Route: 042
  2. ETOPOSIDE [Suspect]
     Indication: HODGKIN'S DISEASE
     Dosage: CYCLE 1
     Route: 065
  3. VINCRISTINE [Suspect]
     Indication: HODGKIN'S DISEASE
     Dosage: CYCLE 1
     Route: 065
  4. BLEOMYCIN SULFATE [Suspect]
     Indication: HODGKIN'S DISEASE
     Dosage: CYCLE 1
     Route: 065
  5. PREDNISONE [Suspect]
     Indication: HODGKIN'S DISEASE
     Dosage: CYCLE 1
     Route: 065
  6. DOXORUBICIN HYDROCHLORIDE [Suspect]
     Dosage: CYCLE 1
     Route: 042
  7. CYCLOPHOSPHAMIDE [Suspect]
     Indication: HODGKIN'S DISEASE
     Dosage: CYCLE 1
     Route: 065
  8. PROCARBAZINE HYDROCHLORIDE [Suspect]
     Indication: HODGKIN'S DISEASE
     Dosage: CYCLE 1
     Route: 065
  9. RADIOTHERAPY [Suspect]
     Indication: HODGKIN'S DISEASE
     Dosage: CYCLE 1
     Route: 065

REACTIONS (1)
  - DEATH [None]
